FAERS Safety Report 4551174-3 (Version None)
Quarter: 2005Q1

REPORT INFORMATION
  Report Type: 
  Country: None (occurrence: None)
  Receive Date: 20050113
  Receipt Date: 20050104
  Transmission Date: 20050727
  Serious: Yes (Hospitalization)
  Sender: FDA-Public Use
  Company Number: US-BRISTOL-MYERS SQUIBB COMPANY-12819637

PATIENT
  Age: 52 Year
  Sex: Female

DRUGS (14)
  1. SERZONE [Suspect]
     Indication: DEPRESSION
     Dates: start: 19960701, end: 20020501
  2. HYDROCHLOROTHIAZIDE [Concomitant]
  3. LOTENSIN [Concomitant]
  4. BECONASE [Concomitant]
  5. OGEN [Concomitant]
  6. BECLOVENT [Concomitant]
  7. GLYBURIDE [Concomitant]
  8. NPH INSULIN [Concomitant]
  9. PEPCID [Concomitant]
  10. REGLAN [Concomitant]
  11. FLONASE [Concomitant]
  12. DILANTIN [Concomitant]
  13. NORVASC [Concomitant]
  14. AMITRIPTYLINE HCL [Concomitant]

REACTIONS (14)
  - CHOLANGITIS SCLEROSING [None]
  - CHOLELITHIASIS [None]
  - DEHYDRATION [None]
  - DUODENAL ULCER [None]
  - GASTRITIS [None]
  - HEPATIC FIBROSIS [None]
  - HEPATITIS B [None]
  - JAUNDICE CHOLESTATIC [None]
  - NAUSEA [None]
  - PANCREATIC MASS [None]
  - PANCREATITIS [None]
  - SIMPLE PARTIAL SEIZURES [None]
  - VOMITING [None]
  - WOUND INFECTION [None]
